FAERS Safety Report 9456631 (Version 1)
Quarter: 2013Q3

REPORT INFORMATION
  Report Type: Spontaneous
  Country: US (occurrence: US)
  Receive Date: 20130813
  Receipt Date: 20130813
  Transmission Date: 20140515
  Serious: No
  Sender: FDA-Public Use
  Company Number: US-009507513-1308USA003036

PATIENT
  Sex: Female

DRUGS (2)
  1. DULERA [Suspect]
     Indication: DYSPNOEA
     Dosage: 2 PUFFS, BID
     Route: 055
     Dates: start: 20130717
  2. PREDNISONE [Concomitant]

REACTIONS (2)
  - Throat tightness [Not Recovered/Not Resolved]
  - Fatigue [Not Recovered/Not Resolved]
